FAERS Safety Report 17827010 (Version 3)
Quarter: 2020Q2

REPORT INFORMATION
  Report Type: Spontaneous
  Country: DE (occurrence: DE)
  Receive Date: 20200526
  Receipt Date: 20200622
  Transmission Date: 20200714
  Serious: Yes (Other)
  Sender: FDA-Public Use
  Company Number: NVSC2020DE143837

PATIENT
  Age: 81 Year
  Sex: Male

DRUGS (16)
  1. PREDNISOLONE. [Suspect]
     Active Substance: PREDNISOLONE
     Indication: DIFFUSE LARGE B-CELL LYMPHOMA
     Dosage: 100 MG, MODIFIED R-CHOP REGIMEN WAS ADMINISTERED IN MONTHLY INTERVALS
     Route: 065
  2. DOXORUBICIN [Suspect]
     Active Substance: DOXORUBICIN
     Dosage: 20 MG/M2, ANOTHER COURSE OF MODIFIED R-CHOP IN 100 % DOSING
     Route: 065
  3. PREDNISOLONE. [Suspect]
     Active Substance: PREDNISOLONE
     Dosage: MODIFIED R-CHOP REGIMEN WAS ADMINISTERED IN 75 PERCENT DOSE REDUCTION; 4 COURSES
     Route: 065
  4. CYCLOPHOSPHAMIDE. [Suspect]
     Active Substance: CYCLOPHOSPHAMIDE
     Indication: DIFFUSE LARGE B-CELL LYMPHOMA
     Dosage: 750 MG/M2, MODIFIED R-CHOP REGIMEN IN 100 PERCENT DOSING
     Route: 065
  5. VINCRISTINE [Suspect]
     Active Substance: VINCRISTINE
     Indication: DIFFUSE LARGE B-CELL LYMPHOMA
     Dosage: MODIFIED R-CHOP REGIMEN WAS ADMINISTERED IN 75 % DOSE REDUCTION; 4 COURSES
     Route: 065
  6. DOXORUBICIN [Suspect]
     Active Substance: DOXORUBICIN
     Dosage: MODIFIED R-CHOP REGIMEN WAS ADMINISTERED IN 75 PERCENT DOSE REDUCTION; 4 COURSES
     Route: 065
  7. PREDNISOLONE. [Suspect]
     Active Substance: PREDNISOLONE
     Dosage: 100 MG, MODIFIED R-CHOP REGIMEN IN 100 PERCENT DOSING
     Route: 065
  8. RITUXIMAB. [Suspect]
     Active Substance: RITUXIMAB
     Indication: DIFFUSE LARGE B-CELL LYMPHOMA
     Dosage: MODIFIED R-CHOP REGIMEN WAS ADMINISTERED IN 75 PERCENT DOSE REDUCTION; 4 COURSES
     Route: 065
  9. RITUXIMAB. [Suspect]
     Active Substance: RITUXIMAB
     Dosage: 375 MG/M2, MODIFIED R-CHOP REGIMEN IN 100 PERCENT DOSING
     Route: 065
  10. VINCRISTINE [Suspect]
     Active Substance: VINCRISTINE
     Dosage: 1.4 MG/M2 MODIFIED R-CHOP REGIMEN WAS ADMINISTERED IN MONTHLY INTERVALS
     Route: 065
  11. VINCRISTINE [Suspect]
     Active Substance: VINCRISTINE
     Dosage: 1.4 MG/M2 MODIFIED R-CHOP REGIMEN IN 100 % DOSING
     Route: 065
  12. CYCLOPHOSPHAMIDE. [Suspect]
     Active Substance: CYCLOPHOSPHAMIDE
     Dosage: 750 MG/M2, MODIFIED R-CHOP REGIMEN WAS ADMINISTERED IN MONTHLY INTERVALS
     Route: 065
  13. CYCLOPHOSPHAMIDE. [Suspect]
     Active Substance: CYCLOPHOSPHAMIDE
     Dosage: MODIFIED R-CHOP REGIMEN WAS ADMINISTERED IN 75 PERCENT DOSE REDUCTION; 4 COURSES
     Route: 065
  14. RITUXIMAB. [Suspect]
     Active Substance: RITUXIMAB
     Dosage: 375 MG/M2, MODIFIED R-CHOP REGIMEN WAS ADMINISTERED IN MONTHLY INTERVALS
     Route: 065
  15. DOXORUBICIN [Suspect]
     Active Substance: DOXORUBICIN
     Indication: DIFFUSE LARGE B-CELL LYMPHOMA
     Dosage: 20 MG/M2, MODIFIED R-CHOP REGIMEN IN 100 PERCENT DOSING
     Route: 065
  16. DOXORUBICIN [Suspect]
     Active Substance: DOXORUBICIN
     Dosage: 20 MG/M2 MODIFIED R-CHOP REGIMEN WAS ADMINISTERED IN MONTHLY INTERVALS
     Route: 065

REACTIONS (6)
  - Dizziness [Unknown]
  - Leukopenia [Unknown]
  - Agitation [Unknown]
  - Thrombosis [Unknown]
  - Headache [Unknown]
  - Extravasation [Unknown]
